FAERS Safety Report 5420634-5 (Version None)
Quarter: 2007Q3

REPORT INFORMATION
  Report Type: 
  Country: None (occurrence: None)
  Receive Date: 20070821
  Receipt Date: 20070814
  Transmission Date: 20080115
  Serious: Yes (Hospitalization, Other)
  Sender: FDA-Public Use
  Company Number: PHHO2005CA11160

PATIENT
  Age: 48 Year
  Sex: Male

DRUGS (18)
  1. NOVASEN [Concomitant]
  2. ZOPICLONE [Concomitant]
     Dosage: 7.5MH
  3. SIMVASTATIN [Concomitant]
  4. SANDOSTATIN LAR [Suspect]
     Indication: POST GASTRIC SURGERY SYNDROME
     Dosage: 20MG EVERY 4 WEEKS
     Route: 030
     Dates: start: 20000120
  5. SANDOSTATIN LAR [Suspect]
     Dosage: 20 MG, QMO
  6. LIBRAX [Concomitant]
     Indication: ABDOMINAL PAIN
     Dosage: 10MG TID
     Route: 048
  7. COTAZYM [Concomitant]
     Dosage: 8 TID-QIT
     Route: 048
  8. DILAUDID [Concomitant]
     Dosage: 4MG EVERY 4 HOURS
  9. HYDROMORPH CONTIN [Concomitant]
     Dosage: 12 MG EVERY 12 HOURS
  10. LOSEC [Concomitant]
     Dosage: 20MG QD
     Route: 048
  11. BUSCOPAN [Concomitant]
  12. ATIVAN [Concomitant]
     Dosage: 2MG QHS
     Route: 048
  13. ELAVIL [Concomitant]
  14. ZOCOR [Concomitant]
  15. VIAGRA [Concomitant]
     Dosage: 100MG PRN
  16. LIPITOR [Concomitant]
  17. GABAPENTIN [Concomitant]
     Dosage: 800MG TID
  18. ASDOL [Concomitant]
     Dosage: 325MG, QD

REACTIONS (11)
  - ABDOMINAL PAIN [None]
  - ACUTE SINUSITIS [None]
  - ANKLE OPERATION [None]
  - BACK PAIN [None]
  - CEREBROVASCULAR ACCIDENT [None]
  - CONSTIPATION [None]
  - GAIT DISTURBANCE [None]
  - GALLBLADDER DISORDER [None]
  - HEADACHE [None]
  - PAIN [None]
  - WEIGHT INCREASED [None]
